FAERS Safety Report 21700109 (Version 3)
Quarter: 2023Q4

REPORT INFORMATION
  Report Type: Spontaneous
  Country: FR (occurrence: FR)
  Receive Date: 20221208
  Receipt Date: 20231207
  Transmission Date: 20240109
  Serious: Yes (Hospitalization, Disabling, Other)
  Sender: FDA-Public Use
  Company Number: None

PATIENT

DRUGS (5)
  1. SUMATRIPTAN SUCCINATE [Suspect]
     Active Substance: SUMATRIPTAN SUCCINATE
     Indication: Cluster headache
     Dosage: UNK
     Route: 058
     Dates: start: 20190304, end: 202006
  2. SUMATRIPTAN SUCCINATE [Suspect]
     Active Substance: SUMATRIPTAN SUCCINATE
     Dosage: 2 DF, QD
     Route: 058
     Dates: start: 20190323, end: 202006
  3. ABILIFY [Suspect]
     Active Substance: ARIPIPRAZOLE
     Indication: Psychotic disorder
     Dosage: 10 MG, QD
     Route: 048
     Dates: end: 202006
  4. ABILIFY [Suspect]
     Active Substance: ARIPIPRAZOLE
     Indication: Headache
  5. LOXAPINE [Suspect]
     Active Substance: LOXAPINE
     Indication: Psychotic disorder
     Dosage: 25 MG, QD
     Route: 048
     Dates: end: 202006

REACTIONS (19)
  - Pulmonary embolism [Recovered/Resolved with Sequelae]
  - Lung disorder [Unknown]
  - Peripheral ischaemia [Recovered/Resolved with Sequelae]
  - Hyposplenism [Unknown]
  - Seizure [Unknown]
  - Hemiplegia [Unknown]
  - Paralysis [Unknown]
  - Thrombocytosis [Unknown]
  - Condition aggravated [Unknown]
  - Peripheral artery thrombosis [Unknown]
  - Peripheral embolism [Unknown]
  - Iron deficiency [Unknown]
  - Extremity necrosis [Unknown]
  - Disease progression [Unknown]
  - Arthralgia [Not Recovered/Not Resolved]
  - Urinary tract infection [Unknown]
  - Genital herpes [Unknown]
  - Hypophosphataemia [Unknown]
  - Folate deficiency [Unknown]

NARRATIVE: CASE EVENT DATE: 20200611
